FAERS Safety Report 7291581-1 (Version None)
Quarter: 2011Q1

REPORT INFORMATION
  Report Type: 
  Country: None (occurrence: None)
  Receive Date: 20110214
  Receipt Date: 20110204
  Transmission Date: 20110831
  Serious: Yes (Hospitalization)
  Sender: FDA-Public Use
  Company Number: PHHO2010JP05096

PATIENT

DRUGS (12)
  1. OMEPRAL [Concomitant]
  2. AMN107 [Suspect]
     Dosage: 600 MG, QD
     Dates: start: 20081029
  3. GLYBURIDE [Concomitant]
  4. AMN107 [Suspect]
     Dosage: 400 MG, QD
     Dates: start: 20080730, end: 20081028
  5. MAGLAX [Concomitant]
  6. ALOSENN [Concomitant]
  7. AMN107 [Suspect]
     Indication: CHRONIC MYELOID LEUKAEMIA
     Dosage: 600 MG, QD
     Route: 048
     Dates: start: 20080410, end: 20080708
  8. MEVALOTIN [Concomitant]
  9. SENNOSIDE [Concomitant]
  10. BASEN [Concomitant]
  11. KETOPROFEN [Concomitant]
  12. ARTZ [Concomitant]

REACTIONS (7)
  - DIABETIC VASCULAR DISORDER [None]
  - BACK PAIN [None]
  - PAIN IN EXTREMITY [None]
  - HYPOAESTHESIA [None]
  - AORTIC CALCIFICATION [None]
  - ARTERIAL THROMBOSIS LIMB [None]
  - THROMBOLYSIS [None]
